FAERS Safety Report 24538377 (Version 4)
Quarter: 2025Q1

REPORT INFORMATION
  Report Type: Report from Study
  Country: US (occurrence: US)
  Receive Date: 20241023
  Receipt Date: 20250129
  Transmission Date: 20250408
  Serious: Yes (Hospitalization, Other)
  Sender: DECIPHERA PHARMACEUTICALS
  Company Number: US-DECIPHERA PHARMACEUTICALS LLC-2024US000891

PATIENT
  Age: 67 Year
  Sex: Female

DRUGS (5)
  1. QINLOCK [Suspect]
     Active Substance: RIPRETINIB
     Indication: Gastrointestinal stromal tumour
     Dosage: 150 MILLIGRAM, QD
     Route: 048
     Dates: start: 20241007, end: 20241007
  2. QINLOCK [Suspect]
     Active Substance: RIPRETINIB
     Indication: Soft tissue sarcoma
     Dosage: 100 MILLIGRAM, QD
     Route: 048
     Dates: start: 20241009, end: 20241012
  3. QINLOCK [Suspect]
     Active Substance: RIPRETINIB
     Indication: Malignant connective tissue neoplasm
     Dosage: 50 MILLIGRAM, QD
     Route: 048
     Dates: start: 20241013, end: 20241024
  4. QINLOCK [Suspect]
     Active Substance: RIPRETINIB
     Dosage: 100 MILLIGRAM, QD
     Route: 048
     Dates: start: 20241025, end: 20241029
  5. QINLOCK [Suspect]
     Active Substance: RIPRETINIB
     Dosage: 150 MILLIGRAM, QD
     Route: 048

REACTIONS (15)
  - Atrial fibrillation [Unknown]
  - Hospitalisation [Unknown]
  - Mobility decreased [Unknown]
  - Feeling abnormal [Unknown]
  - Pain [Unknown]
  - Tremor [Unknown]
  - Toothache [Unknown]
  - Dizziness [Unknown]
  - Heart rate decreased [Unknown]
  - Adverse event [Unknown]
  - Tinnitus [Unknown]
  - Gingival bleeding [Recovered/Resolved]
  - Blood pressure increased [Recovered/Resolved]
  - Myalgia [Not Recovered/Not Resolved]
  - Intentional underdose [Unknown]

NARRATIVE: CASE EVENT DATE: 20240101
